FAERS Safety Report 26147857 (Version 1)
Quarter: 2025Q4

REPORT INFORMATION
  Report Type: Report from Study
  Country: US (occurrence: US)
  Receive Date: 20251212
  Receipt Date: 20251212
  Transmission Date: 20260118
  Serious: Yes (Other)
  Sender: ABBVIE
  Company Number: US-ABBVIE-6584317

PATIENT
  Age: 51 Year
  Sex: Male

DRUGS (1)
  1. SKYRIZI [Suspect]
     Active Substance: RISANKIZUMAB-RZAA
     Indication: Psoriasis
     Route: 048

REACTIONS (2)
  - Shoulder operation [Unknown]
  - Thrombosis [Unknown]

NARRATIVE: CASE EVENT DATE: 20251001
